FAERS Safety Report 12935121 (Version 2)
Quarter: 2016Q4

REPORT INFORMATION
  Report Type: Spontaneous
  Country: US (occurrence: US)
  Receive Date: 20161114
  Receipt Date: 20161214
  Transmission Date: 20170207
  Serious: Yes (Other)
  Sender: FDA-Public Use
  Company Number: US-TEVA-711933USA

PATIENT
  Sex: Female

DRUGS (1)
  1. MOXIFLOXACIN. [Suspect]
     Active Substance: MOXIFLOXACIN
     Indication: URINARY TRACT INFECTION
     Dosage: 3 DOSES
     Route: 065

REACTIONS (5)
  - Peripheral swelling [Unknown]
  - Nephrolithiasis [Unknown]
  - Pain [Unknown]
  - Drug ineffective [Unknown]
  - Toxicity to various agents [Unknown]

NARRATIVE: CASE EVENT DATE: 2016
